FAERS Safety Report 16896224 (Version 1)
Quarter: 2019Q4

REPORT INFORMATION
  Report Type: Spontaneous
  Country: CZ (occurrence: CZ)
  Receive Date: 20191008
  Receipt Date: 20191008
  Transmission Date: 20200122
  Serious: Yes (Hospitalization)
  Sender: FDA-Public Use
  Company Number: CZ-PFIZER INC-2019431265

PATIENT
  Age: 74 Year
  Sex: Female

DRUGS (2)
  1. XALATAN [Suspect]
     Active Substance: LATANOPROST
     Indication: GLAUCOMA
  2. KALNORMIN [Concomitant]
     Active Substance: POTASSIUM CHLORIDE
     Dosage: 3X/WEEK

REACTIONS (7)
  - Suffocation feeling [Recovered/Resolved]
  - Chest pain [Recovered/Resolved]
  - Blood pressure fluctuation [Recovered/Resolved]
  - Palpitations [Recovered/Resolved]
  - Vertigo [Recovering/Resolving]
  - Headache [Recovered/Resolved]
  - Vision blurred [Recovered/Resolved]
